FAERS Safety Report 4310762-X (Version None)
Quarter: 2004Q1

REPORT INFORMATION
  Report Type: 
  Country: None (occurrence: None)
  Receive Date: 20040302
  Receipt Date: 20040223
  Transmission Date: 20041129
  Serious: Yes (Other)
  Sender: FDA-Public Use
  Company Number: CA-JNJFOC-20040102466

PATIENT
  Age: 36 Year
  Sex: Female
  Weight: 63 kg

DRUGS (12)
  1. REMICADE [Suspect]
     Dosage: INTRAVENOUS; 655 MG, INTRAVENOUS
     Route: 042
     Dates: start: 20021126
  2. REMICADE [Suspect]
     Dosage: INTRAVENOUS; 655 MG, INTRAVENOUS
     Route: 042
     Dates: start: 20030404
  3. CAMPATH IH             (ALL OTHER THERAPEUTIC PRODUCTS) [Concomitant]
  4. TACROLIMUS (TACROLIMUS) [Concomitant]
  5. SIROLIMUS (SIROLIMUS) [Concomitant]
  6. PENTAMIDINE (PENTAMIDINE) [Concomitant]
  7. SPIRONOLACTONE [Concomitant]
  8. PRAVACHOL [Concomitant]
  9. OMEPRAZOLE [Concomitant]
  10. INDERAL [Concomitant]
  11. MAGNESIUM (MAGNESIUM) [Concomitant]
  12. MULTIVITAMIN           (MULTIVITAMINS) [Concomitant]

REACTIONS (6)
  - COORDINATION ABNORMAL [None]
  - DYSPHONIA [None]
  - METABOLIC DISORDER [None]
  - NERVOUS SYSTEM DISORDER [None]
  - NYSTAGMUS [None]
  - TREMOR [None]
